FAERS Safety Report 10963336 (Version 1)
Quarter: 2015Q1

REPORT INFORMATION
  Report Type: Spontaneous
  Country: GB (occurrence: GB)
  Receive Date: 20150327
  Receipt Date: 20150327
  Transmission Date: 20150721
  Serious: Yes (Other)
  Sender: FDA-Public Use
  Company Number: GB-ASTRAZENECA-2015SE27160

PATIENT
  Age: 60 Year
  Sex: Male

DRUGS (3)
  1. CLOPRIDOGEL [Concomitant]
  2. LOSEC [Suspect]
     Active Substance: OMEPRAZOLE
     Indication: HAEMORRHAGE
     Route: 048
     Dates: start: 20150219
  3. WARFARIN [Concomitant]
     Active Substance: WARFARIN

REACTIONS (3)
  - Fluid retention [Unknown]
  - Cardiomyopathy [Unknown]
  - Cerebrovascular accident [Unknown]
